FAERS Safety Report 12369502 (Version 1)
Quarter: 2016Q2

REPORT INFORMATION
  Report Type: Spontaneous
  Country: US (occurrence: None)
  Receive Date: 20160513
  Receipt Date: 20160513
  Transmission Date: 20160815
  Serious: No
  Sender: FDA-Public Use
  Company Number: None

PATIENT
  Age: 67 Year
  Sex: Female

DRUGS (5)
  1. IBRANCE [Suspect]
     Active Substance: PALBOCICLIB
     Indication: BREAST CANCER
     Route: 048
     Dates: start: 20160303
  2. WARFARIN [Concomitant]
     Active Substance: WARFARIN
  3. HYDROXYCHLOR [Concomitant]
     Active Substance: HYDROXYCHLOROQUINE
  4. LETROZOLE. [Concomitant]
     Active Substance: LETROZOLE
  5. PROLIA [Concomitant]
     Active Substance: DENOSUMAB

REACTIONS (2)
  - Dizziness [None]
  - Blood count abnormal [None]
